FAERS Safety Report 23573737 (Version 1)
Quarter: 2024Q1

REPORT INFORMATION
  Report Type: Spontaneous
  Country: CH (occurrence: CH)
  Receive Date: 20240228
  Receipt Date: 20240228
  Transmission Date: 20240409
  Serious: Yes (Life-Threatening)
  Sender: FDA-Public Use
  Company Number: None

PATIENT
  Age: 75 Year
  Sex: Female
  Weight: 67 kg

DRUGS (7)
  1. DEXAMETHASONE [Suspect]
     Active Substance: DEXAMETHASONE
     Indication: Prophylaxis of nausea and vomiting
     Dosage: TIME INTERVAL: TOTAL: IN TOTAL
     Route: 040
     Dates: start: 20240103, end: 20240103
  2. DOBUTREX [Concomitant]
     Active Substance: DOBUTAMINE HYDROCHLORIDE
     Indication: Hypotension
     Route: 041
     Dates: start: 20240103, end: 20240103
  3. DROPERIDOL [Suspect]
     Active Substance: DROPERIDOL
     Indication: Prophylaxis of nausea and vomiting
     Dosage: TIME INTERVAL: TOTAL: IN TOTAL
     Route: 040
     Dates: start: 20240103, end: 20240103
  4. ONDANSETRON [Suspect]
     Active Substance: ONDANSETRON
     Indication: Prophylaxis of nausea and vomiting
     Dosage: TIME INTERVAL: TOTAL: IN TOTAL
     Route: 041
     Dates: start: 20240103, end: 20240103
  5. AMIODARONE [Suspect]
     Active Substance: AMIODARONE
     Indication: Arrhythmia prophylaxis
     Dosage: TIME INTERVAL: TOTAL: IN TOTAL
     Route: 041
     Dates: start: 20240103, end: 20240103
  6. CEFUROXIME SODIUM [Suspect]
     Active Substance: CEFUROXIME SODIUM
     Indication: Antibiotic prophylaxis
     Dosage: 1.5 G AT 8:15 A.M., 11:15 A.M. AND 2:30 P.M.
     Route: 041
     Dates: start: 20240103, end: 20240103
  7. PROTAMINE SULFATE [Suspect]
     Active Substance: PROTAMINE SULFATE
     Indication: Heparin neutralisation therapy
     Dosage: TIME INTERVAL: TOTAL: IN TOTAL
     Route: 040
     Dates: start: 20240103, end: 20240103

REACTIONS (3)
  - Anaphylactic reaction [Recovered/Resolved]
  - Rash [Recovered/Resolved]
  - Hypotension [Recovered/Resolved]

NARRATIVE: CASE EVENT DATE: 20240103
